FAERS Safety Report 23496410 (Version 1)
Quarter: 2024Q1

REPORT INFORMATION
  Report Type: Spontaneous
  Country: US (occurrence: None)
  Receive Date: 20240207
  Receipt Date: 20240207
  Transmission Date: 20240410
  Serious: Yes (Other)
  Sender: FDA-Public Use
  Company Number: None

PATIENT
  Age: 60 Year
  Sex: Female

DRUGS (1)
  1. GOCOVRI [Suspect]
     Active Substance: AMANTADINE
     Indication: Parkinson^s disease
     Dosage: 137MG QD ORAL
     Route: 048
     Dates: start: 20240105, end: 20240129

REACTIONS (6)
  - Headache [None]
  - Photosensitivity reaction [None]
  - Eye pain [None]
  - Eye muscle recession [None]
  - Therapy cessation [None]
  - Drug intolerance [None]

NARRATIVE: CASE EVENT DATE: 20240207
